FAERS Safety Report 7198595-0 (Version None)
Quarter: 2010Q4

REPORT INFORMATION
  Report Type: 
  Country: None (occurrence: None)
  Receive Date: 20101227
  Receipt Date: 20101214
  Transmission Date: 20110411
  Serious: Yes (Hospitalization)
  Sender: FDA-Public Use
  Company Number: US-ELI_LILLY_AND_COMPANY-US201012003619

PATIENT
  Sex: Male
  Weight: 71.2 kg

DRUGS (15)
  1. CETUXIMAB [Suspect]
     Indication: NON-SMALL CELL LUNG CANCER
     Dosage: 468 MG, UNK
     Dates: start: 20100917, end: 20101112
  2. GEMCITABINE HCL [Suspect]
     Indication: NON-SMALL CELL LUNG CANCER
     Dosage: 1400 MG, UNK
     Dates: start: 20100917, end: 20101112
  3. CARBOPLATIN [Suspect]
     Indication: NON-SMALL CELL LUNG CANCER
     Dosage: 497 MG, UNK
     Dates: start: 20100917, end: 20101112
  4. SIMVASTATIN [Concomitant]
     Dosage: 40 MG, DAILY (1/D)
  5. LIZINOPRIL [Concomitant]
     Dosage: 20 MG, DAILY (1/D)
  6. PLAVIX [Concomitant]
     Dosage: 75 MG, DAILY (1/D)
  7. ATENOLOL [Concomitant]
     Dosage: 50 MG, DAILY (1/D)
  8. AMIODARONE [Concomitant]
     Dosage: 200 MG, DAILY (1/D)
  9. DIGOXIN [Concomitant]
     Dosage: 125 U, DAILY (1/D)
  10. FUROSEMIDE [Concomitant]
     Dosage: 40 MG, DAILY (1/D)
  11. AMLODIPINE [Concomitant]
     Dosage: 10 MG, DAILY (1/D)
  12. NEXIUM [Concomitant]
     Dosage: 40 MG, DAILY (1/D)
  13. TAMSULOSIN [Concomitant]
     Dosage: 0.4 MG, DAILY (1/D)
  14. ADVAIR [Concomitant]
     Dosage: 1 D/F, DAILY (1/D)
     Route: 055
  15. SYMBICORT [Concomitant]
     Dosage: 180 MG, OTHER
     Route: 055

REACTIONS (4)
  - ACUTE MYOCARDIAL INFARCTION [None]
  - CHEST PAIN [None]
  - DYSPNOEA [None]
  - PARAESTHESIA [None]
